FAERS Safety Report 5751402-2 (Version None)
Quarter: 2008Q2

REPORT INFORMATION
  Report Type: 
  Country: None (occurrence: None)
  Receive Date: 20080523
  Receipt Date: 20080523
  Transmission Date: 20081010
  Serious: Yes (Hospitalization, Disabling, Other)
  Sender: FDA-Public Use
  Company Number: US_0510122672

PATIENT
  Age: 45 Year
  Sex: Female
  Weight: 134.5 kg

DRUGS (16)
  1. ZYPREXA [Suspect]
     Dosage: SEE IMAGE
     Dates: start: 19990511, end: 19990525
  2. ZYPREXA [Suspect]
     Dosage: SEE IMAGE
     Dates: start: 20000330, end: 20000516
  3. ZYPREXA [Suspect]
     Dosage: SEE IMAGE
     Dates: start: 20000516, end: 20001130
  4. ZYPREXA [Suspect]
     Dosage: SEE IMAGE
     Dates: start: 20001130, end: 20011129
  5. ZYPREXA [Suspect]
     Dosage: SEE IMAGE
     Dates: start: 19970207, end: 20031101
  6. ZYPREXA [Suspect]
     Dosage: SEE IMAGE
     Dates: start: 20011129
  7. ABILIFY [Concomitant]
  8. PROZAC [Concomitant]
  9. XANAX [Concomitant]
  10. CITALOPRAM HYDROBROMIDE [Concomitant]
  11. PREDNISONE TAB [Concomitant]
  12. MULTIVITAMIN [Concomitant]
  13. CALCIUM CARBONATE (CALCIUM CARBONATE) TABLET [Concomitant]
  14. MAGNESIUM SULFATE [Concomitant]
  15. ZINC (ZINC) [Concomitant]
  16. COENZYME Q10 [Concomitant]

REACTIONS (12)
  - ATRIAL FIBRILLATION [None]
  - ATRIAL FLUTTER [None]
  - BUNDLE BRANCH BLOCK LEFT [None]
  - CARDIAC FAILURE CONGESTIVE [None]
  - CONDITION AGGRAVATED [None]
  - DIABETES MELLITUS INADEQUATE CONTROL [None]
  - EYE DISORDER [None]
  - FALL [None]
  - OBESITY [None]
  - PULMONARY HYPERTENSION [None]
  - TREATMENT NONCOMPLIANCE [None]
  - WEIGHT INCREASED [None]
